FAERS Safety Report 20500828 (Version 4)
Quarter: 2022Q2

REPORT INFORMATION
  Report Type: Spontaneous
  Country: JP (occurrence: JP)
  Receive Date: 20220222
  Receipt Date: 20220609
  Transmission Date: 20220721
  Serious: No
  Sender: FDA-Public Use
  Company Number: JP-GLAXOSMITHKLINE-JP2022JPN028029

PATIENT

DRUGS (4)
  1. SOTROVIMAB [Suspect]
     Active Substance: SOTROVIMAB
     Indication: COVID-19
     Dosage: 500 MG PER DAY
     Route: 041
     Dates: start: 20220212, end: 20220212
  2. ACETAMINOPHEN [Suspect]
     Active Substance: ACETAMINOPHEN
     Indication: Pyrexia
     Dosage: 400 MG PER DOSE, WHEN PYREXIA OCCURRED
     Route: 048
     Dates: start: 20220212
  3. DIPHENHYDRAMINE [Suspect]
     Active Substance: DIPHENHYDRAMINE
     Indication: Prurigo
     Dosage: UNK
     Dates: start: 20220310
  4. RINDERON V [Suspect]
     Active Substance: BETAMETHASONE VALERATE
     Indication: Prurigo
     Dosage: UNK
     Dates: start: 20220310

REACTIONS (5)
  - Rhinorrhoea [Recovered/Resolved]
  - Headache [Recovered/Resolved]
  - Pyrexia [Recovered/Resolved]
  - Oxygen saturation decreased [Recovered/Resolved]
  - Exposure during pregnancy [Unknown]
